FAERS Safety Report 9511042 (Version 1)
Quarter: 2013Q3

REPORT INFORMATION
  Report Type: Spontaneous
  Country: US (occurrence: None)
  Receive Date: 20130905
  Receipt Date: 20130905
  Transmission Date: 20140515
  Serious: Yes (Hospitalization)
  Sender: FDA-Public Use
  Company Number: FK201303689

PATIENT
  Age: 12 Year
  Sex: Female

DRUGS (2)
  1. LEVETIRACETAM (MANUFACTURER UNKNOWN) (LEVETIRACETAM) (LEVETIRACETAM) [Suspect]
     Indication: EPILEPSY
     Dosage: UNKNOWN, UNKNOWN, UNKNOWN
  2. VALPROATE [Concomitant]

REACTIONS (4)
  - Toxic encephalopathy [None]
  - Renal failure acute [None]
  - Metabolic acidosis [None]
  - Respiratory distress [None]
